FAERS Safety Report 4385367-5 (Version None)
Quarter: 2004Q2

REPORT INFORMATION
  Report Type: 
  Country: None (occurrence: None)
  Receive Date: 20040622
  Receipt Date: 20040610
  Transmission Date: 20050107
  Serious: Yes (Death, Disabling)
  Sender: FDA-Public Use
  Company Number: 163-20785-04050352

PATIENT
  Age: 71 Year
  Sex: Male

DRUGS (1)
  1. THALOMID [Suspect]
     Indication: MALIGNANT NEOPLASM OF RENAL PELVIS
     Dosage: 100 MG, DAILY, ORAL
     Route: 048
     Dates: start: 20040205, end: 20040301

REACTIONS (3)
  - ASTHENIA [None]
  - MALIGNANT NEOPLASM OF RENAL PELVIS [None]
  - MALIGNANT NEOPLASM PROGRESSION [None]
